FAERS Safety Report 9698189 (Version 1)
Quarter: 2013Q4

REPORT INFORMATION
  Report Type: Spontaneous
  Country: FR (occurrence: FR)
  Receive Date: 20131120
  Receipt Date: 20131120
  Transmission Date: 20140711
  Serious: Yes (Hospitalization, Other)
  Sender: FDA-Public Use
  Company Number: FR-ABBVIE-13P-056-1169113-00

PATIENT
  Age: 54 Year
  Sex: Male

DRUGS (7)
  1. HUMIRA [Suspect]
     Indication: CROHN^S DISEASE
     Dosage: INDUCTION DOSE: 160 MG
     Route: 058
     Dates: start: 201307, end: 20130906
  2. SOLUPRED [Suspect]
     Indication: CROHN^S DISEASE
     Route: 048
     Dates: start: 201307, end: 20130906
  3. SOLUPRED [Suspect]
     Dates: start: 20130911
  4. CACIT D3 [Concomitant]
     Indication: PRODUCT USED FOR UNKNOWN INDICATION
     Route: 048
     Dates: start: 201307, end: 201308
  5. EUPANTOL [Concomitant]
     Indication: PRODUCT USED FOR UNKNOWN INDICATION
     Route: 048
     Dates: start: 201307, end: 201308
  6. SPECIAFOLDINE [Concomitant]
     Indication: PRODUCT USED FOR UNKNOWN INDICATION
     Route: 048
     Dates: start: 201307, end: 201308
  7. DIFFU K [Concomitant]
     Indication: PRODUCT USED FOR UNKNOWN INDICATION
     Route: 048
     Dates: start: 201307, end: 201308

REACTIONS (7)
  - Lung disorder [Unknown]
  - Immunosuppression [Unknown]
  - Opportunistic infection [Recovering/Resolving]
  - Tuberculosis [Unknown]
  - Pseudomonas infection [Unknown]
  - Escherichia infection [Unknown]
  - Crohn^s disease [Unknown]
